FAERS Safety Report 20582718 (Version 16)
Quarter: 2024Q3

REPORT INFORMATION
  Report Type: Spontaneous
  Country: US (occurrence: US)
  Receive Date: 20220311
  Receipt Date: 20240828
  Transmission Date: 20241016
  Serious: No
  Sender: PFIZER
  Company Number: US-PFIZER INC-2020387583

PATIENT
  Age: 65 Year
  Sex: Female
  Weight: 63 kg

DRUGS (9)
  1. PREMARIN [Suspect]
     Active Substance: ESTROGENS, CONJUGATED
     Indication: Atrophic vulvovaginitis
     Dosage: 3 DAYS A WEEK
     Route: 067
  2. PREMARIN [Suspect]
     Active Substance: ESTROGENS, CONJUGATED
     Indication: Postmenopause
     Dosage: 0.5 G, 3X/DAY
  3. PREMARIN [Suspect]
     Active Substance: ESTROGENS, CONJUGATED
     Dosage: 0.625 MG
  4. PREMARIN [Suspect]
     Active Substance: ESTROGENS, CONJUGATED
     Dosage: 0.5 MG, 3 TIMES A WEEK
     Route: 067
  5. XARELTO [Concomitant]
     Active Substance: RIVAROXABAN
     Dosage: 20 MG, DAILY
  6. GEMFIBROZIL [Concomitant]
     Active Substance: GEMFIBROZIL
     Dosage: 60 MG, 2X/DAY
  7. DIGOXIN [Concomitant]
     Active Substance: DIGOXIN
     Dosage: UNK, 3X/DAY
  8. FISH OIL [Concomitant]
     Active Substance: FISH OIL
     Dosage: UNK, DAILY
  9. PREMARIN [Concomitant]
     Active Substance: ESTROGENS, CONJUGATED
     Indication: Atrophic vulvovaginitis
     Dosage: 1.25 MG, DAILY

REACTIONS (3)
  - Pharyngeal disorder [Unknown]
  - Off label use [Unknown]
  - Product use issue [Unknown]
